FAERS Safety Report 5792102-2 (Version None)
Quarter: 2008Q2

REPORT INFORMATION
  Report Type: 
  Country: None (occurrence: None)
  Receive Date: 20080626
  Receipt Date: 20080229
  Transmission Date: 20081010
  Serious: No
  Sender: FDA-Public Use
  Company Number: US-ASTRAZENECA-2008UW04207

PATIENT
  Age: 84 Year
  Sex: Female
  Weight: 45.4 kg

DRUGS (6)
  1. PULMICORT RESPULSE [Suspect]
     Indication: ASTHMA
     Dosage: 0.25/2ML
     Route: 055
     Dates: start: 20080201
  2. PULMICORT RESPULSE [Suspect]
     Indication: CHRONIC OBSTRUCTIVE PULMONARY DISEASE
     Dosage: 0.25/2ML
     Route: 055
     Dates: start: 20080201
  3. ALBUTEROL [Concomitant]
  4. SPIRIVA [Concomitant]
  5. ADVAIR DISKUS 100/50 [Concomitant]
  6. OXYGEN [Concomitant]
     Dosage: 24 HOURS PER DAY

REACTIONS (1)
  - WHEEZING [None]
